FAERS Safety Report 6450534-3 (Version None)
Quarter: 2009Q4

REPORT INFORMATION
  Report Type: 
  Country: None (occurrence: None)
  Receive Date: 20091123
  Receipt Date: 20091109
  Transmission Date: 20100525
  Serious: Yes (Other)
  Sender: FDA-Public Use
  Company Number: PHHY2009BR38950

PATIENT
  Sex: Female
  Weight: 54 kg

DRUGS (4)
  1. COMBIPATCH [Suspect]
     Indication: MENOPAUSE
     Dosage: 50/140 MCG
     Route: 062
  2. FRONTAL [Concomitant]
     Indication: ANXIETY
     Dosage: 1 TAB AT NIGHT
     Route: 048
  3. FRONTAL [Concomitant]
     Indication: SLEEP DISORDER
  4. PURAN T4 [Concomitant]
     Indication: HYPOTHYROIDISM
     Dosage: 1 TABLET IN FASTING
     Route: 048

REACTIONS (2)
  - POSTMENOPAUSAL HAEMORRHAGE [None]
  - UTERINE INJURY [None]
